FAERS Safety Report 23923008 (Version 2)
Quarter: 2024Q3

REPORT INFORMATION
  Report Type: Spontaneous
  Country: CA (occurrence: CA)
  Receive Date: 20240531
  Receipt Date: 20240829
  Transmission Date: 20241017
  Serious: Yes (Other)
  Sender: TOLMAR
  Company Number: CA-TOLMAR, INC.-24CA049617

PATIENT
  Age: 66 Year
  Sex: Male

DRUGS (7)
  1. ELIGARD [Suspect]
     Active Substance: LEUPROLIDE ACETATE
     Indication: Prostate cancer
     Dosage: 45 MILLIGRAM, Q 6 MONTH
     Route: 058
     Dates: start: 201908
  2. ELIGARD [Suspect]
     Active Substance: LEUPROLIDE ACETATE
     Dosage: 45 MILLIGRAM, Q 6 MONTH
     Route: 058
  3. ELIGARD [Suspect]
     Active Substance: LEUPROLIDE ACETATE
     Indication: Prostate cancer
     Dosage: 22.5 MILLIGRAM, Q 6 MONTH
     Dates: start: 20190823
  4. ELIGARD [Suspect]
     Active Substance: LEUPROLIDE ACETATE
     Dosage: 22.5 MILLIGRAM, Q 6 MONTH
     Dates: start: 202002
  5. ELIGARD [Suspect]
     Active Substance: LEUPROLIDE ACETATE
     Indication: Prostate cancer
     Dosage: UNK
  6. UNSPECIFIED INGREDIENT [Suspect]
     Active Substance: UNSPECIFIED INGREDIENT
     Indication: Depression
     Dosage: UNK
  7. TYLENOL [Suspect]
     Active Substance: ACETAMINOPHEN
     Indication: Bone pain
     Dosage: UNK

REACTIONS (28)
  - Arrhythmia [Unknown]
  - Meningioma [Unknown]
  - Epilepsy [Unknown]
  - Erectile dysfunction [Not Recovered/Not Resolved]
  - Pituitary apoplexy [Not Recovered/Not Resolved]
  - Respiration abnormal [Unknown]
  - Heart rate increased [Unknown]
  - Haemoglobin abnormal [Unknown]
  - White blood cell count increased [Unknown]
  - General physical health deterioration [Unknown]
  - Seborrhoeic keratosis [Not Recovered/Not Resolved]
  - Off label use [Unknown]
  - Osteoporosis [Unknown]
  - Dyspnoea [Unknown]
  - Headache [Unknown]
  - Hypogonadism [Unknown]
  - Hypoaesthesia [Unknown]
  - Chills [Unknown]
  - Hot flush [Not Recovered/Not Resolved]
  - Depression [Not Recovered/Not Resolved]
  - Loss of libido [Not Recovered/Not Resolved]
  - Injection site mass [Unknown]
  - Injection site pain [Recovered/Resolved]
  - Myalgia [Unknown]
  - Asthenia [Not Recovered/Not Resolved]
  - Prostatic specific antigen increased [Unknown]
  - Blood testosterone abnormal [Unknown]
  - Red blood cell count decreased [Unknown]

NARRATIVE: CASE EVENT DATE: 20190801
